FAERS Safety Report 21468777 (Version 1)
Quarter: 2022Q4

REPORT INFORMATION
  Report Type: Spontaneous
  Country: US (occurrence: US)
  Receive Date: 20221018
  Receipt Date: 20221018
  Transmission Date: 20230113
  Serious: Yes (Hospitalization)
  Sender: FDA-Public Use
  Company Number: US-SUN PHARMACEUTICAL INDUSTRIES LTD-2022R1-359114

PATIENT
  Age: 81 Year
  Sex: Female

DRUGS (5)
  1. ATROPINE [Suspect]
     Active Substance: ATROPINE
     Indication: Periorbital cellulitis
     Dosage: 1 PERCENT, DAILY
     Route: 061
  2. CEFTAZIDIME [Suspect]
     Active Substance: CEFTAZIDIME
     Indication: Periorbital cellulitis
     Dosage: UNK, HOURLY
     Route: 065
  3. CIPROFLOXACIN [Suspect]
     Active Substance: CIPROFLOXACIN
     Indication: Periorbital cellulitis
     Dosage: 500 MILLIGRAM, BID
     Route: 048
  4. DIFLUPREDNATE [Suspect]
     Active Substance: DIFLUPREDNATE
     Indication: Periorbital cellulitis
     Dosage: UNK,FOUR TIMES A DAY
     Route: 065
  5. TOBRAMYCIN [Suspect]
     Active Substance: TOBRAMYCIN
     Indication: Periorbital cellulitis
     Dosage: UNK
     Route: 065

REACTIONS (2)
  - Disease progression [Unknown]
  - Therapy non-responder [Unknown]
